FAERS Safety Report 8603440-X (Version None)
Quarter: 2012Q3

REPORT INFORMATION
  Report Type: 
  Country: None (occurrence: None)
  Receive Date: 20120817
  Receipt Date: 20120809
  Transmission Date: 20120928
  Serious: Yes (Hospitalization)
  Sender: FDA-Public Use
  Company Number: US-ASTRAZENECA-2012SE56920

PATIENT
  Age: 66 Year
  Sex: Female

DRUGS (1)
  1. NEXIUM [Suspect]
     Route: 048

REACTIONS (7)
  - OESOPHAGITIS [None]
  - GASTRITIS EROSIVE [None]
  - RETCHING [None]
  - SLEEP DISORDER DUE TO A GENERAL MEDICAL CONDITION [None]
  - COUGH [None]
  - GASTROOESOPHAGEAL REFLUX DISEASE [None]
  - DRUG DOSE OMISSION [None]
